FAERS Safety Report 14637193 (Version 4)
Quarter: 2019Q2

REPORT INFORMATION
  Report Type: Report from Study
  Country: BG (occurrence: BG)
  Receive Date: 20180314
  Receipt Date: 20190529
  Transmission Date: 20190711
  Serious: Yes (Death, Life-Threatening, Other)
  Sender: FDA-Public Use
  Company Number: BG-GILEAD-2018-0325658

PATIENT
  Age: 74 Year
  Sex: Male

DRUGS (6)
  1. INSULIN [Concomitant]
     Active Substance: INSULIN NOS
  2. NORVASC [Concomitant]
     Active Substance: AMLODIPINE BESYLATE
  3. LEDIPASVIR/SOFOSBUVIR [Suspect]
     Active Substance: LEDIPASVIR\SOFOSBUVIR
     Indication: CHRONIC HEPATITIS C
     Dosage: 1 DF, QD
     Route: 065
     Dates: start: 201703, end: 201706
  4. BETALOC ZOK [Concomitant]
     Active Substance: METOPROLOL SUCCINATE
  5. CLOPIDOGREL [Concomitant]
     Active Substance: CLOPIDOGREL BISULFATE
  6. SPIRONOLACTONE. [Concomitant]
     Active Substance: SPIRONOLACTONE

REACTIONS (4)
  - Drug ineffective [Unknown]
  - Death [Fatal]
  - Virologic failure [Unknown]
  - Hepatitis C [Unknown]
